FAERS Safety Report 16129317 (Version 1)
Quarter: 2019Q1

REPORT INFORMATION
  Report Type: Spontaneous
  Country: CH (occurrence: CH)
  Receive Date: 20190328
  Receipt Date: 20190328
  Transmission Date: 20190418
  Serious: Yes (Other)
  Sender: FDA-Public Use
  Company Number: PHHY2019CH066074

PATIENT
  Sex: Female

DRUGS (1)
  1. DICLOFENAC [Suspect]
     Active Substance: DICLOFENAC
     Indication: URINARY TRACT INFECTION
     Dosage: 1 DF, BID (TWO CAPSULES EACH DAY)
     Route: 065

REACTIONS (1)
  - Pyelonephritis [Unknown]
